FAERS Safety Report 11969639 (Version 1)
Quarter: 2016Q1

REPORT INFORMATION
  Report Type: Spontaneous
  Country: US (occurrence: None)
  Receive Date: 20160119
  Receipt Date: 20160119
  Transmission Date: 20160526
  Serious: Yes (Other)
  Sender: FDA-Public Use
  Company Number: 2015-US-008714

PATIENT
  Age: 14 Year
  Sex: Male

DRUGS (1)
  1. ERWINAZE [Suspect]
     Active Substance: ASPARAGINASE ERWINIA CHRYSANTHEMI
     Dosage: 25000 IU/M2, INTRAMUSCULAR
     Route: 030

REACTIONS (4)
  - Vomiting [None]
  - Hyperammonaemia [None]
  - Diarrhoea [None]
  - Hypertension [None]
